FAERS Safety Report 6888008-8 (Version None)
Quarter: 2010Q3

REPORT INFORMATION
  Report Type: 
  Country: None (occurrence: None)
  Receive Date: 20100730
  Receipt Date: 20100723
  Transmission Date: 20110219
  Serious: Yes (Other)
  Sender: FDA-Public Use
  Company Number: A0872637A

PATIENT
  Age: 36 Year
  Sex: Female

DRUGS (3)
  1. COMBIVIR [Suspect]
     Indication: ANTIVIRAL TREATMENT
     Dosage: 2U PER DAY
     Route: 048
     Dates: start: 20090811
  2. KALETRA [Suspect]
     Indication: PRODUCT USED FOR UNKNOWN INDICATION
     Dosage: 4U PER DAY
     Route: 048
     Dates: start: 20090811
  3. ATRIPLA [Suspect]
     Indication: ANTIVIRAL TREATMENT
     Dosage: 1U PER DAY
     Route: 048
     Dates: start: 20070221, end: 20090706

REACTIONS (2)
  - ABORTION INDUCED [None]
  - DRUG EXPOSURE DURING PREGNANCY [None]
